FAERS Safety Report 20538353 (Version 1)
Quarter: 2022Q1

REPORT INFORMATION
  Report Type: Spontaneous
  Country: US (occurrence: None)
  Receive Date: 20220301
  Receipt Date: 20220301
  Transmission Date: 20220423
  Serious: Yes (Hospitalization)
  Sender: FDA-Public Use
  Company Number: None

PATIENT
  Sex: Female

DRUGS (9)
  1. IBRANCE [Suspect]
     Active Substance: PALBOCICLIB
     Indication: Breast cancer
     Dosage: FREQUENCY : DAILY;?
     Route: 048
  2. flecaininde 50 mg tab [Concomitant]
  3. letrozole 2.5 mg tab [Concomitant]
  4. levothyroxine 175 mg tab [Concomitant]
  5. omeprazole 20 mg tab [Concomitant]
  6. OXYBUTYNIN [Concomitant]
     Active Substance: OXYBUTYNIN
  7. pradaxa 75 mg cap [Concomitant]
  8. propranolol 60 mg tab [Concomitant]
  9. ramipril 5 mg cap [Concomitant]

REACTIONS (2)
  - Renal pain [None]
  - Renal impairment [None]
